FAERS Safety Report 21274949 (Version 1)
Quarter: 2022Q3

REPORT INFORMATION
  Report Type: Spontaneous
  Country: US (occurrence: US)
  Receive Date: 20220831
  Receipt Date: 20220831
  Transmission Date: 20221026
  Serious: No
  Sender: FDA-Public Use
  Company Number: US-AMERICAN REGENT INC-2021002182

PATIENT
  Age: 42 Year
  Sex: Female
  Weight: 122 kg

DRUGS (22)
  1. INJECTAFER [Suspect]
     Active Substance: FERRIC CARBOXYMALTOSE
     Indication: Iron deficiency anaemia
     Dosage: 750 MILLIGRAM IN 250 CC  NS
     Route: 042
     Dates: start: 20210702, end: 20210702
  2. INJECTAFER [Suspect]
     Active Substance: FERRIC CARBOXYMALTOSE
     Dosage: UNK UNK, SINGLE
     Route: 065
     Dates: start: 20180801, end: 20180801
  3. INJECTAFER [Suspect]
     Active Substance: FERRIC CARBOXYMALTOSE
     Dosage: UNK UNK, SINGLE
     Route: 065
     Dates: start: 20180809, end: 20180809
  4. INJECTAFER [Suspect]
     Active Substance: FERRIC CARBOXYMALTOSE
     Dosage: UNK UNK, SINGLE
     Route: 065
     Dates: start: 20191001, end: 20191001
  5. INJECTAFER [Suspect]
     Active Substance: FERRIC CARBOXYMALTOSE
     Dosage: UNK UNK, SINGLE
     Route: 065
     Dates: start: 20191008, end: 20191008
  6. INJECTAFER [Suspect]
     Active Substance: FERRIC CARBOXYMALTOSE
     Dosage: UNK UNK, SINGLE
     Route: 065
     Dates: start: 20200630, end: 20200630
  7. INJECTAFER [Suspect]
     Active Substance: FERRIC CARBOXYMALTOSE
     Dosage: UNK UNK, SINGLE
     Route: 065
     Dates: start: 20200607, end: 20200607
  8. ELETRIPTAN [Concomitant]
     Active Substance: ELETRIPTAN
     Indication: Migraine
     Dosage: 20 MILLIGRAM PER 1 TABLET, DAILY PRN
     Route: 048
  9. METOCLOPRAMIDE [Concomitant]
     Active Substance: METOCLOPRAMIDE
     Indication: Migraine
     Dosage: 10 MILLIGRAM 1 TABLET, TID PRN
     Route: 048
  10. NAPROXEN [Concomitant]
     Active Substance: NAPROXEN
     Indication: Headache
     Dosage: 250 MILLIGRAM, 1-2X/DAY PRN
     Route: 048
  11. ZONISAMIDE [Concomitant]
     Active Substance: ZONISAMIDE
     Indication: Product used for unknown indication
     Dosage: 100 MILLIGRAM PER 2 CAPSULE, DAILY 1 CAPSULE AT NIGHT. INCREASE TO 2 CAPSULES IN 2 WEEKS
     Route: 048
  12. ERGOCALCIFEROL [Concomitant]
     Active Substance: ERGOCALCIFEROL
     Indication: Product used for unknown indication
     Dosage: 1.25 MILLIGRAM, Q7DAYS
     Route: 048
  13. ALBUTEROL [Concomitant]
     Active Substance: ALBUTEROL
     Indication: Wheezing
     Dosage: 2 PUFF Q4-6 HR PRN
  14. METFORMIN [Concomitant]
     Active Substance: METFORMIN HYDROCHLORIDE
     Indication: Product used for unknown indication
     Dosage: 500 MILLIGRAM PER 1 TABLET , QD
     Route: 048
  15. ESCITALOPRAM [Concomitant]
     Active Substance: ESCITALOPRAM OXALATE
     Indication: Product used for unknown indication
     Dosage: 30 MILLIGRAM PER 3 TABLET QD
     Route: 048
  16. PROPRANOLOL [Concomitant]
     Active Substance: PROPRANOLOL HYDROCHLORIDE
     Indication: Product used for unknown indication
     Dosage: 10 MILLIGRAM, BID
     Route: 048
  17. PATADAY [Concomitant]
     Active Substance: OLOPATADINE HYDROCHLORIDE
     Indication: Product used for unknown indication
     Dosage: 1 DROP EYE, EACH DAILY
     Route: 047
  18. XYZAL [Concomitant]
     Active Substance: LEVOCETIRIZINE DIHYDROCHLORIDE
     Indication: Product used for unknown indication
     Dosage: 5 MILLIGRAM, 1 TABLET 2X/WK
     Route: 048
  19. SINGULAIR [Concomitant]
     Active Substance: MONTELUKAST SODIUM
     Indication: Product used for unknown indication
     Dosage: 10 MILLIGRAM, QD
     Route: 048
  20. IBU [Concomitant]
     Active Substance: IBUPROFEN
     Indication: Product used for unknown indication
     Dosage: 600 MILLIGRAM, Q6H
     Route: 048
  21. MULTIVITAMIN                       /00097801/ [Concomitant]
     Indication: Product used for unknown indication
     Dosage: 1 TABLET, QD
     Route: 048
  22. TOPIRAMATE [Concomitant]
     Active Substance: TOPIRAMATE
     Indication: Product used for unknown indication
     Dosage: 50 MILLIGRAM, BID
     Route: 048

REACTIONS (1)
  - Nausea [Recovered/Resolved]

NARRATIVE: CASE EVENT DATE: 20210702
